FAERS Safety Report 6934014-4 (Version None)
Quarter: 2010Q3

REPORT INFORMATION
  Report Type: 
  Country: None (occurrence: None)
  Receive Date: 20100820
  Receipt Date: 20100811
  Transmission Date: 20110219
  Serious: Yes (Other)
  Sender: FDA-Public Use
  Company Number: AU-PFIZER INC-2010100616

PATIENT
  Sex: Male

DRUGS (6)
  1. LIPITOR [Suspect]
     Indication: BLOOD CHOLESTEROL INCREASED
     Dosage: 10 MG, UNK
  2. TENORMIN [Concomitant]
     Dosage: UNK
  3. ZOTON [Concomitant]
     Dosage: UNK
  4. KARVEA [Concomitant]
     Dosage: UNK
  5. ZYLOPRIM [Concomitant]
     Dosage: UNK
  6. GOPTEN ^ABBOTT^ [Concomitant]
     Dosage: UNK

REACTIONS (1)
  - INTERVERTEBRAL DISC DEGENERATION [None]
